FAERS Safety Report 6819226-2 (Version None)
Quarter: 2010Q3

REPORT INFORMATION
  Report Type: 
  Country: None (occurrence: None)
  Receive Date: 20100707
  Receipt Date: 20100624
  Transmission Date: 20110219
  Serious: Yes (Other)
  Sender: FDA-Public Use
  Company Number: US-BAYER-201030286GPV

PATIENT

DRUGS (3)
  1. SORAFENIB [Suspect]
     Indication: NEOPLASM
  2. BEVACIZUMAB [Suspect]
     Indication: NEOPLASM
  3. PACLITAXEL [Suspect]
     Indication: NEOPLASM

REACTIONS (2)
  - BLADDER PERFORATION [None]
  - LARGE INTESTINE PERFORATION [None]
